FAERS Safety Report 16131838 (Version 1)
Quarter: 2019Q2

REPORT INFORMATION
  Report Type: Spontaneous
  Country: US (occurrence: US)
  Receive Date: 20190328
  Receipt Date: 20190328
  Transmission Date: 20190711
  Serious: No
  Sender: FDA-Public Use
  Company Number: None

PATIENT
  Age: 58 Year
  Sex: Female
  Weight: 112.5 kg

DRUGS (1)
  1. CREST GUM AND ENAMEL REPAIR ADVANCED WHITENING [Suspect]
     Active Substance: STANNOUS FLUORIDE
     Indication: GINGIVAL EROSION
     Dosage: ?          OTHER ROUTE:BRUSHING TEETH?
     Dates: start: 20190322, end: 20190327

REACTIONS (1)
  - Hyperaesthesia teeth [None]

NARRATIVE: CASE EVENT DATE: 20190325
